APPROVED DRUG PRODUCT: AMOXICILLIN
Active Ingredient: AMOXICILLIN
Strength: 250MG
Dosage Form/Route: CAPSULE;ORAL
Application: A062884 | Product #001
Applicant: STRIDES PHARMA INTERNATIONAL AG
Approved: Feb 25, 1988 | RLD: No | RS: No | Type: DISCN